FAERS Safety Report 25772468 (Version 1)
Quarter: 2025Q3

REPORT INFORMATION
  Report Type: Spontaneous
  Country: US (occurrence: US)
  Receive Date: 20250908
  Receipt Date: 20250908
  Transmission Date: 20251020
  Serious: No
  Sender: SANOFI AVENTIS
  Company Number: US-SA-2025SA266524

PATIENT
  Sex: Female
  Weight: 61.224 kg

DRUGS (5)
  1. DUPIXENT [Suspect]
     Active Substance: DUPILUMAB
     Indication: Dermatitis atopic
     Dosage: 300 MG, QOW
     Route: 058
     Dates: end: 202505
  2. BUSPIRONE HCL [Concomitant]
     Active Substance: BUSPIRONE HYDROCHLORIDE
  3. EBGLYSS [Concomitant]
     Active Substance: LEBRIKIZUMAB-LBKZ
  4. SEROQUEL [Concomitant]
     Active Substance: QUETIAPINE FUMARATE
  5. DULOXETINE HYDROCHLORIDE [Concomitant]
     Active Substance: DULOXETINE HYDROCHLORIDE

REACTIONS (1)
  - Drug ineffective [Unknown]
